FAERS Safety Report 4890137-5 (Version None)
Quarter: 2005Q4

REPORT INFORMATION
  Report Type: 
  Country: None (occurrence: None)
  Receive Date: 20051220
  Receipt Date: 20051115
  Transmission Date: 20060501
  Serious: Yes (Other)
  Sender: FDA-Public Use
  Company Number: US151360

PATIENT
  Age: 47 Year
  Sex: Female

DRUGS (20)
  1. ENBREL [Suspect]
     Indication: PSORIASIS
     Dosage: 50 MG, 2 IN 1 WEEKS
     Dates: start: 20040201, end: 20050901
  2. ENBREL [Suspect]
     Indication: PSORIATIC ARTHROPATHY
     Dosage: 50 MG, 2 IN 1 WEEKS
     Dates: start: 20040201, end: 20050901
  3. OLMESARTAN MEDOXOMIL [Concomitant]
  4. LEVOTHYROXINE SODIUM [Concomitant]
  5. ESTROGENS CONJUGATED [Concomitant]
  6. MELOXICAM [Concomitant]
  7. PRAVASTATIN SODIUM [Concomitant]
  8. TOPROL-XL [Concomitant]
  9. METHADONE [Concomitant]
  10. ACETAMINOPHEN AND HYDROCODONE BITARTRATE [Concomitant]
  11. ALBUTEROL SULFATE [Concomitant]
  12. HYDROCHLOROTHIAZIDE [Concomitant]
  13. ESCITALOPRAM OXALATE [Concomitant]
  14. MODAFINIL [Concomitant]
  15. CYANOCOBALAMIN [Concomitant]
  16. ESZOPICLONE [Concomitant]
  17. BETASERON [Concomitant]
  18. IBUPROFEN [Concomitant]
  19. GABAPENTIN [Concomitant]
  20. VALDEXOCIB [Concomitant]

REACTIONS (1)
  - MULTIPLE SCLEROSIS [None]
